FAERS Safety Report 18601696 (Version 3)
Quarter: 2020Q4

REPORT INFORMATION
  Report Type: Report from Study
  Country: US (occurrence: US)
  Receive Date: 20201210
  Receipt Date: 20201228
  Transmission Date: 20210114
  Serious: Yes (Hospitalization)
  Sender: FDA-Public Use
  Company Number: NVSC2020US325161

PATIENT
  Age: 26 Year
  Sex: Male

DRUGS (1)
  1. ENTRESTO [Suspect]
     Active Substance: SACUBITRIL\VALSARTAN
     Indication: PRODUCT USED FOR UNKNOWN INDICATION
     Dosage: UNK UNK, BID
     Route: 048
     Dates: start: 202008

REACTIONS (5)
  - Dyspnoea [Unknown]
  - Pain [Unknown]
  - Hypopnoea [Unknown]
  - Throat clearing [Unknown]
  - Cough [Not Recovered/Not Resolved]
